FAERS Safety Report 18069996 (Version 1)
Quarter: 2020Q3

REPORT INFORMATION
  Report Type: Spontaneous
  Country: DE (occurrence: DE)
  Receive Date: 20200727
  Receipt Date: 20200727
  Transmission Date: 20201103
  Serious: Yes (Other)
  Sender: FDA-Public Use
  Company Number: DE-AMGEN-DEUSP2020118158

PATIENT
  Age: 38 Year
  Sex: Male

DRUGS (4)
  1. CYCLOPHOSPHAMIDE. [Concomitant]
     Active Substance: CYCLOPHOSPHAMIDE
     Indication: GRANULOMATOSIS WITH POLYANGIITIS
     Dosage: 200 (4X50) MILLIGRAM/KILOGRAM
  2. RITUXIMAB. [Concomitant]
     Active Substance: RITUXIMAB
     Indication: GRANULOMATOSIS WITH POLYANGIITIS
     Dosage: UNK
  3. FILGRASTIM [Suspect]
     Active Substance: FILGRASTIM
     Indication: AUTOLOGOUS HAEMATOPOIETIC STEM CELL TRANSPLANT
     Dosage: UNK
     Route: 065
     Dates: start: 2002
  4. ATG [ANTITHYMOCYTE IMMUNOGLOBULIN (RABBIT)] [Concomitant]
     Dosage: 10 (4X2.5) MILLIGRAM/KILOGRAM
     Dates: start: 2002

REACTIONS (2)
  - Mucosal inflammation [Unknown]
  - Pyoderma [Unknown]
